FAERS Safety Report 9649497 (Version 2)
Quarter: 2013Q4

REPORT INFORMATION
  Report Type: Spontaneous
  Country: US (occurrence: US)
  Receive Date: 20131028
  Receipt Date: 20131119
  Transmission Date: 20140711
  Serious: No
  Sender: FDA-Public Use
  Company Number: US-TEVA-440621USA

PATIENT
  Age: 28 Year
  Sex: Female
  Weight: 65.83 kg

DRUGS (1)
  1. PARAGARD 380A [Suspect]
     Indication: CONTRACEPTION
     Route: 015
     Dates: start: 20130708, end: 20131003

REACTIONS (1)
  - Device expulsion [Unknown]
